FAERS Safety Report 10597551 (Version 2)
Quarter: 2014Q4

REPORT INFORMATION
  Report Type: Report from Study
  Country: BR (occurrence: BR)
  Receive Date: 20141121
  Receipt Date: 20141128
  Transmission Date: 20150529
  Serious: Yes (Death, Hospitalization)
  Sender: FDA-Public Use
  Company Number: BR-PFIZER INC-2014317702

PATIENT
  Age: 46 Year
  Sex: Male
  Weight: 66 kg

DRUGS (1)
  1. XALKORI [Suspect]
     Active Substance: CRIZOTINIB
     Indication: LUNG ADENOCARCINOMA
     Dosage: 200 MG, BID (2X/DAY)
     Route: 048
     Dates: start: 20141020, end: 20141111

REACTIONS (2)
  - Hallucination [Fatal]
  - Respiratory failure [Fatal]

NARRATIVE: CASE EVENT DATE: 20141027
